FAERS Safety Report 4534409-2 (Version None)
Quarter: 2004Q4

REPORT INFORMATION
  Report Type: 
  Country: None (occurrence: None)
  Receive Date: 20041222
  Receipt Date: 20040607
  Transmission Date: 20050328
  Serious: No
  Sender: FDA-Public Use
  Company Number: US-BRISTOL-MYERS SQUIBB COMPANY-12609277

PATIENT
  Age: 71 Year
  Sex: Female
  Weight: 81 kg

DRUGS (18)
  1. QUESTRAN LIGHT [Suspect]
     Indication: DIARRHOEA
     Route: 048
     Dates: start: 20040606, end: 20040606
  2. LEXAPRO [Concomitant]
  3. SLO-MAG [Concomitant]
  4. CARBATROL [Concomitant]
  5. VERAPAMIL [Concomitant]
  6. NEURONTIN [Concomitant]
  7. ATROVENT [Concomitant]
  8. IMITREX [Concomitant]
  9. LEVOXYL [Concomitant]
  10. TAMOXIFEN CITRATE [Concomitant]
  11. K-DUR [Concomitant]
  12. PROTONIX [Concomitant]
  13. LASIX [Concomitant]
  14. VIOXX [Concomitant]
  15. CALTRATE [Concomitant]
  16. ECOTRIN [Concomitant]
  17. VITAMIN E [Concomitant]
  18. QUININE SULFATE [Concomitant]

REACTIONS (1)
  - THROAT IRRITATION [None]
